FAERS Safety Report 26195770 (Version 1)
Quarter: 2025Q4

REPORT INFORMATION
  Report Type: Spontaneous
  Country: US (occurrence: US)
  Receive Date: 20251224
  Receipt Date: 20251224
  Transmission Date: 20260117
  Serious: Yes (Life-Threatening, Hospitalization, Other)
  Sender: STRIDES
  Company Number: US-STRIDES ARCOLAB LIMITED-2025SP015919

PATIENT
  Age: 77 Year
  Sex: Male

DRUGS (1)
  1. DIAZEPAM [Suspect]
     Active Substance: DIAZEPAM
     Indication: Alcohol withdrawal syndrome
     Dosage: TOTAL DOSE OF 1040MG OVER NINE DAYS
     Route: 065

REACTIONS (2)
  - Pneumonia aspiration [Unknown]
  - Depressed level of consciousness [Unknown]
